FAERS Safety Report 7793312-5 (Version None)
Quarter: 2011Q3

REPORT INFORMATION
  Report Type: 
  Country: None (occurrence: None)
  Receive Date: 20110930
  Receipt Date: 20110930
  Transmission Date: 20111222
  Serious: Yes (Other)
  Sender: FDA-Public Use
  Company Number: None

PATIENT
  Sex: Female
  Weight: 93.441 kg

DRUGS (2)
  1. LOSARTAN POTASSIUM [Suspect]
     Indication: HYPERTENSION
     Dosage: 50MG ONE A DAY ORAL TABLET
     Route: 048
     Dates: start: 20110401, end: 20110401
  2. LOSARTAN POTASSIUM [Suspect]
     Indication: HYPERTENSION
     Dosage: 50MG ONE A DAY ORAL TABLET
     Route: 048
     Dates: start: 20101227, end: 20110101

REACTIONS (1)
  - DIZZINESS [None]
